FAERS Safety Report 9820276 (Version 1)
Quarter: 2013Q4

REPORT INFORMATION
  Report Type: Spontaneous
  Country: GB (occurrence: None)
  Receive Date: 20131024
  Receipt Date: 20131024
  Transmission Date: 20140711
  Serious: Yes (Hospitalization, Other)
  Sender: FDA-Public Use
  Company Number: E2B_00001235

PATIENT
  Age: 66 Year
  Sex: Male

DRUGS (9)
  1. QUETIAPINE (UNKNOWN) [Suspect]
     Indication: PRODUCT USED FOR UNKNOWN INDICATION
     Dosage: 200 MG (100 MG, 2 IN 1 D), ORAL
  2. BENDROFLUMETHIAZIDE [Suspect]
     Indication: PRODUCT USED FOR UNKNOWN INDICATION
     Route: 048
  3. CITALOPRAM (UNKNOWN) (CITALOPRAM) [Suspect]
     Indication: PRODUCT USED FOR UNKNOWN INDICATION
     Route: 048
  4. AMITRIPTYLINE [Suspect]
     Indication: PRODUCT USED FOR UNKNOWN INDICATION
     Route: 048
  5. FELODIPINE [Concomitant]
  6. SIMVASTATIN (UNKNOWN) (SIMVASTATIN) [Concomitant]
  7. TRAMADOL [Concomitant]
  8. TESTOSTERONE (TESTOGEL) [Concomitant]
  9. AMOXICILLIN [Concomitant]

REACTIONS (3)
  - Balance disorder [None]
  - Confusional state [None]
  - Infection [None]
